FAERS Safety Report 19076283 (Version 1)
Quarter: 2021Q1

REPORT INFORMATION
  Report Type: Spontaneous
  Country: US (occurrence: US)
  Receive Date: 20210331
  Receipt Date: 20210331
  Transmission Date: 20210420
  Serious: No
  Sender: FDA-Public Use
  Company Number: US-SA-2021SA105750

PATIENT
  Age: 37 Year
  Sex: Female

DRUGS (2)
  1. DUPIXENT [Suspect]
     Active Substance: DUPILUMAB
     Dosage: 300 MG, QOW
     Route: 058
     Dates: start: 202011
  2. COVID?19 VACCINE [Concomitant]

REACTIONS (4)
  - Peripheral swelling [Unknown]
  - Erythema [Unknown]
  - Dermatitis contact [Unknown]
  - Pain in extremity [Unknown]

NARRATIVE: CASE EVENT DATE: 202101
